FAERS Safety Report 24304301 (Version 2)
Quarter: 2024Q4

REPORT INFORMATION
  Report Type: Spontaneous
  Country: US (occurrence: US)
  Receive Date: 20240910
  Receipt Date: 20241217
  Transmission Date: 20250114
  Serious: No
  Sender: INCYTE
  Company Number: US-INCYTE CORPORATION-2024IN008778

PATIENT

DRUGS (2)
  1. OPZELURA [Suspect]
     Active Substance: RUXOLITINIB PHOSPHATE
     Indication: Dermatitis atopic
     Dosage: UNK, BID
     Route: 065
  2. OPZELURA [Suspect]
     Active Substance: RUXOLITINIB PHOSPHATE
     Dosage: UNK
     Route: 065

REACTIONS (2)
  - Dermatitis atopic [Unknown]
  - Product physical consistency issue [Unknown]
